FAERS Safety Report 10375116 (Version 1)
Quarter: 2014Q3

REPORT INFORMATION
  Report Type: Spontaneous
  Country: US (occurrence: None)
  Receive Date: 20140808
  Receipt Date: 20140808
  Transmission Date: 20150326
  Serious: Yes (Other)
  Sender: FDA-Public Use
  Company Number: None

PATIENT
  Age: 44 Year
  Sex: Male
  Weight: 88.45 kg

DRUGS (1)
  1. EQUATE CHILDRENS SUNBLOCK [Suspect]
     Active Substance: HOMOSALATE\OCTINOXATE\OCTISALATE\TITANIUM DIOXIDE
     Indication: PROPHYLAXIS AGAINST SOLAR RADIATION
     Dates: start: 20140726, end: 20140726

REACTIONS (6)
  - Temperature intolerance [None]
  - Application site hypersensitivity [None]
  - Dermatitis contact [None]
  - Photophobia [None]
  - Hypersensitivity [None]
  - Discomfort [None]

NARRATIVE: CASE EVENT DATE: 20140726
